FAERS Safety Report 5281143-X (Version None)
Quarter: 2007Q1

REPORT INFORMATION
  Report Type: 
  Country: None (occurrence: None)
  Receive Date: 20070323
  Receipt Date: 20070309
  Transmission Date: 20070707
  Serious: Yes (Other)
  Sender: FDA-Public Use
  Company Number: 2007VX000832

PATIENT
  Age: 72 Year
  Sex: Male
  Weight: 60 kg

DRUGS (2)
  1. PERMAX [Suspect]
     Indication: PARKINSON'S DISEASE
     Dosage: 125 UG; BID; PO
     Route: 048
     Dates: start: 20061101, end: 20061103
  2. NAUZELIN [Concomitant]

REACTIONS (5)
  - ASTHENIA [None]
  - BLOOD CREATINE PHOSPHOKINASE INCREASED [None]
  - FATIGUE [None]
  - VITAMIN B12 DECREASED [None]
  - VITAMIN B12 DEFICIENCY [None]
